FAERS Safety Report 5602242-6 (Version None)
Quarter: 2008Q1

REPORT INFORMATION
  Report Type: 
  Country: None (occurrence: None)
  Receive Date: 20080125
  Receipt Date: 20080121
  Transmission Date: 20080703
  Serious: Yes (Death, Hospitalization)
  Sender: FDA-Public Use
  Company Number: FR-JNJFOC-20080104876

PATIENT
  Age: 86 Year
  Sex: Female

DRUGS (11)
  1. TAVANIC [Suspect]
     Indication: ENDOCARDITIS
     Route: 048
  2. TAVANIC [Suspect]
     Indication: ARTHRITIS INFECTIVE
     Route: 048
  3. TARGOCID [Suspect]
     Indication: ENDOCARDITIS
     Route: 042
  4. TARGOCID [Suspect]
     Indication: ARTHRITIS INFECTIVE
     Route: 042
  5. DI ANTALVIC [Suspect]
     Indication: DRUG USE FOR UNKNOWN INDICATION
     Route: 048
  6. LASIX [Suspect]
     Indication: DRUG USE FOR UNKNOWN INDICATION
     Route: 048
  7. INIPOMP [Suspect]
     Indication: DRUG USE FOR UNKNOWN INDICATION
     Route: 048
  8. ZOLOFT [Suspect]
     Indication: DRUG USE FOR UNKNOWN INDICATION
     Route: 048
  9. BISOPROLOL FUMARATE [Concomitant]
     Route: 048
  10. DIGOXIN [Concomitant]
     Route: 048
  11. PREVISCAN [Concomitant]
     Route: 048

REACTIONS (3)
  - FEBRILE NEUTROPENIA [None]
  - PANCYTOPENIA [None]
  - URINARY TRACT INFECTION PSEUDOMONAL [None]
